FAERS Safety Report 19320342 (Version 1)
Quarter: 2021Q2

REPORT INFORMATION
  Report Type: Spontaneous
  Country: DE (occurrence: DE)
  Receive Date: 20210528
  Receipt Date: 20210528
  Transmission Date: 20210717
  Serious: Yes (Other)
  Sender: FDA-Public Use
  Company Number: DE-ROCHE-2832374

PATIENT
  Age: 1 Day
  Sex: Male
  Weight: 2.62 kg

DRUGS (3)
  1. RIVOTRIL [Suspect]
     Active Substance: CLONAZEPAM
     Indication: TOURETTE^S DISORDER
     Route: 064
     Dates: start: 20200116, end: 20201016
  2. ARIPIPRAZOL [Suspect]
     Active Substance: ARIPIPRAZOLE
     Indication: TOURETTE^S DISORDER
     Route: 064
     Dates: start: 20200116, end: 20201016
  3. RISPERIDON [Concomitant]
     Active Substance: RISPERIDONE
     Indication: TOURETTE^S DISORDER
     Route: 064
     Dates: start: 20200116, end: 20200326

REACTIONS (3)
  - Foetal exposure during pregnancy [Unknown]
  - Congenital inguinal hernia [Unknown]
  - Small for dates baby [Unknown]

NARRATIVE: CASE EVENT DATE: 20201016
